FAERS Safety Report 11776412 (Version 1)
Quarter: 2015Q4

REPORT INFORMATION
  Report Type: Spontaneous
  Country: HU (occurrence: HU)
  Receive Date: 20151125
  Receipt Date: 20151125
  Transmission Date: 20160304
  Serious: Yes (Death, Hospitalization)
  Sender: FDA-Public Use
  Company Number: HU-ACTELION-A-CH2015-127608

PATIENT
  Age: 67 Year
  Sex: Female

DRUGS (5)
  1. REMODULIN [Concomitant]
     Active Substance: TREPROSTINIL
     Indication: PULMONARY ARTERIAL HYPERTENSION
     Dosage: 18 GTT, PER MIN
     Route: 058
     Dates: start: 201506, end: 20151118
  2. INSPRA [Concomitant]
     Active Substance: EPLERENONE
     Indication: CARDIAC FAILURE
     Dosage: 50 MG, BID
     Route: 048
     Dates: start: 201504, end: 20151118
  3. FUROSEMID [Concomitant]
     Active Substance: FUROSEMIDE
     Indication: CARDIAC FAILURE
     Dosage: 250 MG, OD
     Route: 048
     Dates: start: 201508, end: 20151118
  4. TRACLEER [Suspect]
     Active Substance: BOSENTAN
     Indication: PULMONARY ARTERIAL HYPERTENSION
     Dosage: 125 MG, BID
     Route: 048
     Dates: start: 201405, end: 20151118
  5. REVATIO [Concomitant]
     Active Substance: SILDENAFIL CITRATE
     Indication: PULMONARY ARTERIAL HYPERTENSION
     Dosage: 20 MG, TID
     Route: 048
     Dates: start: 201403, end: 20151118

REACTIONS (6)
  - Cardiopulmonary failure [Fatal]
  - Right ventricular failure [Fatal]
  - Concomitant disease progression [Fatal]
  - Pneumonia [Fatal]
  - Dyspnoea [Unknown]
  - Hydrothorax [Unknown]

NARRATIVE: CASE EVENT DATE: 2015
